FAERS Safety Report 10926654 (Version 1)
Quarter: 2015Q1

REPORT INFORMATION
  Report Type: Spontaneous
  Country: US (occurrence: None)
  Receive Date: 20150316
  Receipt Date: 20150316
  Transmission Date: 20150721
  Serious: Yes (Death)
  Sender: FDA-Public Use
  Company Number: 2015EDG00010

PATIENT
  Age: 21 Year
  Sex: Female

DRUGS (13)
  1. DOXYLAMINE (DOXYLAMINE) [Suspect]
     Active Substance: DOXYLAMINE
  2. HYDROMORPHONE (HYDROMORPHONE) [Suspect]
     Active Substance: HYDROMORPHONE
  3. MEPROBAMATE (MEPROBAMATE) [Suspect]
     Active Substance: MEPROBAMATE
  4. CARISOPRODOL (CARISOPRODOL) UNKNOWN [Suspect]
     Active Substance: CARISOPRODOL
     Indication: MALAISE
  5. DEXTROMETHORPHAN (DEXTROMETHORPHAN) [Suspect]
     Active Substance: DEXTROMETHORPHAN
  6. HYDROXYZINE (HYDROXYZINE) UNKNOWN [Suspect]
     Active Substance: HYDROXYZINE HYDROCHLORIDE
  7. SUMATRIPTAN (SUMATRIPTAN) [Suspect]
     Active Substance: SUMATRIPTAN
  8. FLUOXETINE (FLUOXETINE) UNKNOWN [Suspect]
     Active Substance: FLUOXETINE HYDROCHLORIDE
  9. ONDANSETRON (ONDANSETRON) UNKNOWN [Suspect]
     Active Substance: ONDANSETRON
  10. ORPHENADRINE (ORPHENADRINE) (ORPHENADRINE) [Suspect]
     Active Substance: ORPHENADRINE
  11. GABAPENTIN (GABAPENTIN) UNKNOWN [Suspect]
     Active Substance: GABAPENTIN
  12. NICOTINE (NICOTINE) [Suspect]
     Active Substance: NICOTINE
  13. TRIMETHOPRIM (TRIMETHOPRIM) [Suspect]
     Active Substance: TRIMETHOPRIM

REACTIONS (6)
  - Toxicity to various agents [None]
  - Pulmonary oedema [None]
  - Coronary artery occlusion [None]
  - Accidental death [None]
  - Drug interaction [None]
  - Vomiting [None]
